FAERS Safety Report 9713033 (Version 1)
Quarter: 2013Q4

REPORT INFORMATION
  Report Type: Spontaneous
  Country: US (occurrence: US)
  Receive Date: 20131126
  Receipt Date: 20131126
  Transmission Date: 20140711
  Serious: No
  Sender: FDA-Public Use
  Company Number: US-BRISTOL-MYERS SQUIBB COMPANY-19384924

PATIENT
  Sex: Male
  Weight: 86.17 kg

DRUGS (1)
  1. BYDUREON [Suspect]
     Dosage: PRESCRIPTION #: 0847416-012752
     Route: 058
     Dates: start: 2013

REACTIONS (2)
  - Underdose [Not Recovered/Not Resolved]
  - Product quality issue [Unknown]
